FAERS Safety Report 6330623-4 (Version None)
Quarter: 2009Q3

REPORT INFORMATION
  Report Type: 
  Country: None (occurrence: None)
  Receive Date: 20090827
  Receipt Date: 20090818
  Transmission Date: 20100115
  Serious: Yes (Other)
  Sender: FDA-Public Use
  Company Number: US-KINGPHARMUSA00001-K200901030

PATIENT

DRUGS (1)
  1. SKELAXIN [Suspect]
     Dosage: UNK

REACTIONS (2)
  - NAUSEA [None]
  - SYNCOPE [None]
